FAERS Safety Report 18698114 (Version 1)
Quarter: 2021Q1

REPORT INFORMATION
  Report Type: Spontaneous
  Country: US (occurrence: US)
  Receive Date: 20210105
  Receipt Date: 20210105
  Transmission Date: 20210419
  Serious: Yes (Hospitalization)
  Sender: FDA-Public Use
  Company Number: US-HORIZON-2021HZN00001

PATIENT
  Age: 22 Year
  Sex: Female

DRUGS (2)
  1. RAVICTI [Suspect]
     Active Substance: GLYCEROL PHENYLBUTYRATE
     Indication: UREA CYCLE DISORDER
     Dosage: 4.5 MILLILITER THREE TIMES DAILY
     Route: 048
  2. CITRULLINECITRULLINE [Concomitant]

REACTIONS (2)
  - Metabolic disorder [Recovered/Resolved]
  - Treatment noncompliance [Recovered/Resolved]
